FAERS Safety Report 4347096-3 (Version None)
Quarter: 2004Q2

REPORT INFORMATION
  Report Type: 
  Country: None (occurrence: None)
  Receive Date: 20040422
  Receipt Date: 20040409
  Transmission Date: 20050107
  Serious: Yes (Death)
  Sender: FDA-Public Use
  Company Number: JP-JNJFOC-20040402630

PATIENT
  Age: 57 Year
  Sex: Male

DRUGS (8)
  1. LEUSTATIN [Suspect]
     Indication: FOLLICLE CENTRE LYMPHOMA, FOLLICULAR GRADE I, II, III
     Dosage: 6 MG, 1 IN 1 DAY, INTRAVENOUS DRIP; 6 MG, 1 IN 1 DAY, INTRAVENOUS DRIP
     Route: 041
     Dates: start: 20021213, end: 20021217
  2. LEUSTATIN [Suspect]
     Indication: FOLLICLE CENTRE LYMPHOMA, FOLLICULAR GRADE I, II, III
     Dosage: 6 MG, 1 IN 1 DAY, INTRAVENOUS DRIP; 6 MG, 1 IN 1 DAY, INTRAVENOUS DRIP
     Route: 041
     Dates: start: 20030114, end: 20030120
  3. DOXAZOSIN MESYLATE [Concomitant]
  4. AMLODIPINE BESYLATE [Concomitant]
  5. TEMOCAPRIL HYDROCHLORIDE (TEMOCAPRIL HYDROCHLORIDE) [Concomitant]
  6. FAMOTIDINE [Concomitant]
  7. FLUCONAZOLE [Concomitant]
  8. SULFAMATHOXAZOLE: TRIMETHOPRIM (BACTRIM) [Concomitant]

REACTIONS (6)
  - CORD BLOOD TRANSPLANT THERAPY [None]
  - HAEMOGLOBIN DECREASED [None]
  - LYMPHOCYTE COUNT DECREASED [None]
  - PLATELET COUNT ABNORMAL [None]
  - PROTEIN TOTAL DECREASED [None]
  - WHITE BLOOD CELL COUNT DECREASED [None]
